FAERS Safety Report 5216244-5 (Version None)
Quarter: 2007Q1

REPORT INFORMATION
  Report Type: 
  Country: None (occurrence: None)
  Receive Date: 20070123
  Receipt Date: 20070116
  Transmission Date: 20070707
  Serious: Yes (Other)
  Sender: FDA-Public Use
  Company Number: US-BOEHRINGER INGELHEIM PHARMACEUTICALS, INC.-2007-BP-00956PF

PATIENT
  Sex: Male

DRUGS (5)
  1. SPIRIVA [Suspect]
     Indication: LUNG NEOPLASM MALIGNANT
     Route: 055
     Dates: start: 20060101
  2. ADVAIR DISKUS 100/50 [Concomitant]
  3. FENTANYL TRANSDERMAL SYSTEM [Concomitant]
  4. HYDROMORPHONE HCL [Concomitant]
  5. LIPITOR [Concomitant]

REACTIONS (1)
  - NEOPLASM MALIGNANT [None]
